FAERS Safety Report 17294337 (Version 1)
Quarter: 2020Q1

REPORT INFORMATION
  Report Type: Spontaneous
  Country: IT (occurrence: IT)
  Receive Date: 20200121
  Receipt Date: 20200121
  Transmission Date: 20200409
  Serious: Yes (Other)
  Sender: FDA-Public Use
  Company Number: NVSC2019IT011904

PATIENT
  Age: 61 Year
  Sex: Male

DRUGS (4)
  1. DEXAMETHASONE. [Suspect]
     Active Substance: DEXAMETHASONE
     Indication: SERPIGINOUS CHOROIDITIS
     Dosage: 0.7 MG TWO INJECTIONS IN RIGHT EYE AND ONE INTRAVITREAL INJECTION IN LEFT EYE
     Route: 031
  2. PREDNISONE. [Suspect]
     Active Substance: PREDNISONE
     Dosage: 7.5 MILLIGRAM DAILY;
     Route: 065
  3. METHOTREXATE. [Suspect]
     Active Substance: METHOTREXATE
     Indication: SERPIGINOUS CHOROIDITIS
     Dosage: 17.5 MG, QW
     Route: 065
  4. PREDNISONE. [Suspect]
     Active Substance: PREDNISONE
     Indication: SERPIGINOUS CHOROIDITIS
     Dosage: 12.5 MILLIGRAM DAILY;
     Route: 065

REACTIONS (3)
  - Product use in unapproved indication [Unknown]
  - Diabetes mellitus [Unknown]
  - Intraocular pressure increased [Recovered/Resolved]
